FAERS Safety Report 16536976 (Version 4)
Quarter: 2019Q4

REPORT INFORMATION
  Report Type: Report from Study
  Country: IL (occurrence: IL)
  Receive Date: 20190707
  Receipt Date: 20191227
  Transmission Date: 20200122
  Serious: Yes (Life-Threatening, Hospitalization, Other)
  Sender: FDA-Public Use
  Company Number: PHHY2019IL151495

PATIENT
  Age: 6 Year
  Sex: Male
  Weight: 70 kg

DRUGS (2)
  1. DABRAFENIB [Suspect]
     Active Substance: DABRAFENIB
     Indication: GANGLIOGLIOMA
     Dosage: 125 MG, BID
     Route: 048
     Dates: start: 20190523, end: 20191221
  2. DABRAFENIB [Suspect]
     Active Substance: DABRAFENIB
     Dosage: 100 MG, BID
     Route: 048
     Dates: start: 20190716

REACTIONS (10)
  - Stridor [Unknown]
  - Pneumonia [Unknown]
  - Dyspnoea [Recovered/Resolved]
  - Bronchial obstruction [Not Recovered/Not Resolved]
  - Snoring [Not Recovered/Not Resolved]
  - Lymphadenopathy [Unknown]
  - Oxygen saturation decreased [Unknown]
  - Hypoxia [Recovering/Resolving]
  - Viral infection [Recovered/Resolved]
  - Pyrexia [Recovered/Resolved]

NARRATIVE: CASE EVENT DATE: 20190625
